FAERS Safety Report 5096221-8 (Version None)
Quarter: 2006Q3

REPORT INFORMATION
  Report Type: 
  Country: None (occurrence: None)
  Receive Date: 20060905
  Receipt Date: 20060823
  Transmission Date: 20061208
  Serious: Yes (Hospitalization)
  Sender: FDA-Public Use
  Company Number: FR-ROCHE-460785

PATIENT
  Age: 56 Year
  Sex: Female
  Weight: 47 kg

DRUGS (2)
  1. CAPECITABINE [Suspect]
     Indication: DRUG USE FOR UNKNOWN INDICATION
     Dosage: GIVEN FOR 14 DAYS OF A 21 DAY CYCLE.
     Route: 048
     Dates: start: 20060811
  2. ARIMIDEX [Concomitant]
     Dosage: DOSE REPORTED AS ^1 MG/J^ - FRENCH CASE.
     Dates: start: 20040215

REACTIONS (2)
  - ANGINA PECTORIS [None]
  - EJECTION FRACTION DECREASED [None]
